FAERS Safety Report 6671498-3 (Version None)
Quarter: 2010Q2

REPORT INFORMATION
  Report Type: 
  Country: None (occurrence: None)
  Receive Date: 20100407
  Receipt Date: 20100401
  Transmission Date: 20101027
  Serious: Yes (Hospitalization)
  Sender: FDA-Public Use
  Company Number: US-MERCK-1001USA00723

PATIENT
  Age: 44 Year
  Sex: Male
  Weight: 138 kg

DRUGS (4)
  1. JANUVIA [Suspect]
     Indication: TYPE 2 DIABETES MELLITUS
     Route: 048
     Dates: start: 20100101, end: 20100101
  2. AMBEN (AMINOBENZOIC ACID) [Concomitant]
     Indication: INSOMNIA
     Route: 048
     Dates: start: 20090219
  3. NEXIUM [Concomitant]
     Indication: GASTROOESOPHAGEAL REFLUX DISEASE
     Route: 048
     Dates: start: 20091221
  4. CIMETIDINE [Concomitant]
     Indication: GASTROOESOPHAGEAL REFLUX DISEASE
     Route: 048
     Dates: end: 20091231

REACTIONS (4)
  - HEPATIC MASS [None]
  - HYPERTENSION [None]
  - HYPOKALAEMIA [None]
  - PANCREATITIS ACUTE [None]
